FAERS Safety Report 5581035-2 (Version None)
Quarter: 2007Q4

REPORT INFORMATION
  Report Type: 
  Country: None (occurrence: None)
  Receive Date: 20071228
  Receipt Date: 20071217
  Transmission Date: 20080405
  Serious: Yes (Hospitalization)
  Sender: FDA-Public Use
  Company Number: 2007AL005386

PATIENT
  Age: 55 Year
  Sex: Female
  Weight: 60 kg

DRUGS (9)
  1. GABAPENTIN [Suspect]
     Indication: MUSCULOSKELETAL PAIN
     Dosage: 600 MG;TID;PO
     Route: 048
     Dates: start: 20050501
  2. ACETAMINOPHEN [Concomitant]
  3. CODEINE PHOSPHATE [Concomitant]
  4. ALFENTANIL [Concomitant]
  5. FENTANYL [Concomitant]
  6. DEXAMETHASONE TAB [Concomitant]
  7. PROPOFOL [Concomitant]
  8. ISOFLURANE [Concomitant]
  9. SEVOFLURANE [Concomitant]

REACTIONS (9)
  - DYSTONIA [None]
  - EMOTIONAL DISTRESS [None]
  - FEELING ABNORMAL [None]
  - MYOCLONUS [None]
  - MYOTONIA [None]
  - NO THERAPEUTIC RESPONSE [None]
  - POST PROCEDURAL COMPLICATION [None]
  - SINUS TACHYCARDIA [None]
  - VARICOSE VEIN OPERATION [None]
